FAERS Safety Report 11043261 (Version 3)
Quarter: 2016Q1

REPORT INFORMATION
  Report Type: Spontaneous
  Country: US (occurrence: US)
  Receive Date: 20150417
  Receipt Date: 20160318
  Transmission Date: 20160525
  Serious: Yes (Hospitalization, Other)
  Sender: FDA-Public Use
  Company Number: US-009507513-1504USA009420

PATIENT
  Age: 44 Year
  Sex: Female

DRUGS (3)
  1. CHLORTHALIDONE. [Suspect]
     Active Substance: CHLORTHALIDONE
     Dosage: 90 TABLETS
     Route: 048
  2. PRINIVIL [Suspect]
     Active Substance: LISINOPRIL
     Dosage: UNKNOWN
     Route: 048
  3. ATENOLOL. [Suspect]
     Active Substance: ATENOLOL
     Dosage: 90 TABLETS
     Route: 048

REACTIONS (5)
  - Acute respiratory distress syndrome [Unknown]
  - Renal failure [Recovered/Resolved]
  - Hypotension [Unknown]
  - Cardiotoxicity [Unknown]
  - Overdose [Unknown]
